FAERS Safety Report 8072449-X (Version None)
Quarter: 2012Q1

REPORT INFORMATION
  Report Type: 
  Country: None (occurrence: None)
  Receive Date: 20120126
  Receipt Date: 20120124
  Transmission Date: 20120608
  Serious: Yes (Death, Hospitalization)
  Sender: FDA-Public Use
  Company Number: US-SANOFI-AVENTIS-2011SA059068

PATIENT
  Age: 60 Year
  Sex: Male
  Weight: 90.91 kg

DRUGS (4)
  1. PREDNISONE TAB [Concomitant]
  2. LUMIGAN [Concomitant]
     Dosage: 1 EVERY HS
  3. JEVTANA KIT [Suspect]
     Indication: PROSTATE CANCER
     Route: 041
     Dates: start: 20110803, end: 20110803
  4. TRAMADOL HCL [Concomitant]

REACTIONS (3)
  - PANCYTOPENIA [None]
  - DEATH [None]
  - HEPATIC FAILURE [None]
